FAERS Safety Report 23939129 (Version 4)
Quarter: 2024Q4

REPORT INFORMATION
  Report Type: Spontaneous
  Country: JP (occurrence: JP)
  Receive Date: 20240604
  Receipt Date: 20241101
  Transmission Date: 20250114
  Serious: Yes (Life-Threatening, Hospitalization, Other)
  Sender: GLAXOSMITHKLINE
  Company Number: JP-GLAXOSMITHKLINE-JP2024JPN045767

PATIENT

DRUGS (11)
  1. DAPRODUSTAT [Suspect]
     Active Substance: DAPRODUSTAT
     Indication: Nephrogenic anaemia
     Dosage: 2 MG, 1D
     Route: 048
     Dates: start: 20231013, end: 20240115
  2. VOGLIBOSE [Concomitant]
     Active Substance: VOGLIBOSE
     Indication: Diabetes mellitus
     Dosage: 0.3 MG, TID
     Route: 048
     Dates: start: 20201217
  3. LANSOPRAZOLE [Concomitant]
     Active Substance: LANSOPRAZOLE
     Indication: Gastrooesophageal reflux disease
     Dosage: 15 MG, 1D
     Route: 048
     Dates: start: 20201201
  4. CALCIUM POLYSTYRENE SULFONATE [Concomitant]
     Active Substance: CALCIUM POLYSTYRENE SULFONATE
     Indication: Hyperkalaemia
     Dosage: 25 MG, 1D
     Route: 048
     Dates: start: 20210210
  5. TRICHLORMETHIAZIDE [Concomitant]
     Active Substance: TRICHLORMETHIAZIDE
     Indication: Hypertension
     Dosage: 1 MG, 1D
     Route: 048
     Dates: start: 20220511
  6. CANAGLIFLOZIN\TENELIGLIPTIN [Concomitant]
     Active Substance: CANAGLIFLOZIN\TENELIGLIPTIN
     Indication: Diabetes mellitus
     Dosage: 1 DF, 1D
     Route: 048
     Dates: start: 20220902
  7. GLIMEPIRIDE [Concomitant]
     Active Substance: GLIMEPIRIDE
     Indication: Diabetes mellitus
     Dosage: 0.5 MG, 1D
     Route: 048
     Dates: start: 20230116, end: 20231110
  8. GLIMEPIRIDE [Concomitant]
     Active Substance: GLIMEPIRIDE
     Dosage: 1 MG, 1D
     Route: 048
     Dates: start: 20231110
  9. ATORVASTATIN [Concomitant]
     Active Substance: ATORVASTATIN
     Indication: Dyslipidaemia
     Dosage: 10 MG, 1D
     Route: 048
     Dates: start: 20230317
  10. AMLODIPINE [Concomitant]
     Active Substance: AMLODIPINE BESYLATE
     Indication: Hypertension
     Dosage: 5 MG, 1D
     Route: 048
     Dates: start: 20211201
  11. MEXILETINE [Concomitant]
     Active Substance: MEXILETINE
     Indication: Ventricular extrasystoles
     Dosage: 100 MG, TID
     Route: 048
     Dates: start: 20141209

REACTIONS (4)
  - Acute myocardial infarction [Recovering/Resolving]
  - Chest pain [Recovering/Resolving]
  - Angina unstable [Recovering/Resolving]
  - Chest discomfort [Recovering/Resolving]

NARRATIVE: CASE EVENT DATE: 20240115
